FAERS Safety Report 5407054-4 (Version None)
Quarter: 2007Q3

REPORT INFORMATION
  Report Type: 
  Country: None (occurrence: None)
  Receive Date: 20070807
  Receipt Date: 20070727
  Transmission Date: 20080115
  Serious: Yes (Other)
  Sender: FDA-Public Use
  Company Number: ES-GENENTECH-245554

PATIENT
  Age: 70 Year
  Sex: Female

DRUGS (2)
  1. BEVACIZUMAB [Suspect]
     Indication: COLORECTAL CANCER METASTATIC
     Dosage: 397.5 MG, Q3W
     Route: 042
     Dates: start: 20061211
  2. ERLOTINIB [Suspect]
     Indication: COLORECTAL CANCER METASTATIC
     Dosage: 150 MG, QD
     Route: 048
     Dates: start: 20070523

REACTIONS (3)
  - DRUG TOXICITY [None]
  - FACE OEDEMA [None]
  - PARAESTHESIA [None]
